FAERS Safety Report 12464486 (Version 1)
Quarter: 2016Q2

REPORT INFORMATION
  Report Type: Spontaneous
  Country: JP (occurrence: JP)
  Receive Date: 20160614
  Receipt Date: 20160614
  Transmission Date: 20160815
  Serious: Yes (Other)
  Sender: FDA-Public Use
  Company Number: JP-ROCHE-1775475

PATIENT
  Age: 57 Year
  Sex: Female

DRUGS (1)
  1. KADCYLA [Suspect]
     Active Substance: ADO-TRASTUZUMAB EMTANSINE
     Indication: PRODUCT USED FOR UNKNOWN INDICATION
     Dosage: DOSAGE IS UNCERTAIN.
     Route: 041

REACTIONS (4)
  - Erythema [Unknown]
  - Pain [Not Recovered/Not Resolved]
  - Infusion site extravasation [Unknown]
  - Blister [Unknown]

NARRATIVE: CASE EVENT DATE: 201605
